FAERS Safety Report 10370751 (Version 1)
Quarter: 2014Q3

REPORT INFORMATION
  Report Type: Spontaneous
  Country: US (occurrence: None)
  Receive Date: 20140807
  Receipt Date: 20140807
  Transmission Date: 20150326
  Serious: Yes (Other)
  Sender: FDA-Public Use
  Company Number: None

PATIENT
  Age: 61 Year
  Sex: Male
  Weight: 68.04 kg

DRUGS (4)
  1. HUMALOG [Concomitant]
     Active Substance: INSULIN LISPRO
  2. ZETIA [Concomitant]
     Active Substance: EZETIMIBE
  3. LEVEMIR [Suspect]
     Active Substance: INSULIN DETEMIR
     Indication: DRUG THERAPY
     Route: 058
     Dates: start: 20140730, end: 20140805
  4. BENAZAPRIL [Concomitant]

REACTIONS (1)
  - Injection site rash [None]

NARRATIVE: CASE EVENT DATE: 20140730
